FAERS Safety Report 7796398-7 (Version None)
Quarter: 2011Q4

REPORT INFORMATION
  Report Type: 
  Country: None (occurrence: None)
  Receive Date: 20111005
  Receipt Date: 20110926
  Transmission Date: 20120403
  Serious: No
  Sender: FDA-Public Use
  Company Number: US-BIOGENIDEC-2011BI033980

PATIENT
  Sex: Female

DRUGS (2)
  1. TYSABRI [Suspect]
     Indication: MULTIPLE SCLEROSIS
     Route: 042
     Dates: start: 20080805
  2. AVONEX [Concomitant]
     Indication: MULTIPLE SCLEROSIS
     Route: 030

REACTIONS (9)
  - PRURITUS [None]
  - HEADACHE [None]
  - PHARYNGEAL OEDEMA [None]
  - BLISTER [None]
  - NAUSEA [None]
  - URTICARIA [None]
  - MEMORY IMPAIRMENT [None]
  - STRESS [None]
  - THROAT TIGHTNESS [None]
